FAERS Safety Report 8607146 (Version 2)
Quarter: 2013Q3

REPORT INFORMATION
  Report Type: Spontaneous
  Country: US (occurrence: US)
  Receive Date: 20120611
  Receipt Date: 20130724
  Transmission Date: 20140515
  Serious: Yes (Hospitalization)
  Sender: FDA-Public Use
  Company Number: US-ASTRAZENECA-2012SE36143

PATIENT
  Age: 43 Year
  Sex: Female

DRUGS (8)
  1. NEXIUM [Suspect]
     Indication: GASTROOESOPHAGEAL REFLUX DISEASE
     Route: 048
     Dates: start: 2004, end: 2009
  2. NEXIUM [Suspect]
     Indication: GASTRITIS
     Route: 048
     Dates: start: 2004, end: 2009
  3. NEXIUM [Suspect]
     Indication: MALABSORPTION
     Route: 048
     Dates: start: 2004, end: 2009
  4. NEXIUM [Suspect]
     Indication: GASTROOESOPHAGEAL REFLUX DISEASE
     Route: 048
     Dates: start: 20070321
  5. NEXIUM [Suspect]
     Indication: GASTRITIS
     Route: 048
     Dates: start: 20070321
  6. NEXIUM [Suspect]
     Indication: MALABSORPTION
     Route: 048
     Dates: start: 20070321
  7. PREVACID [Concomitant]
  8. PROTONIX [Concomitant]

REACTIONS (11)
  - Gallbladder disorder [Unknown]
  - Nephrolithiasis [Unknown]
  - Cardiac disorder [Unknown]
  - Osteoporosis [Unknown]
  - Bone density decreased [Unknown]
  - Upper limb fracture [Unknown]
  - Osteopenia [Unknown]
  - Bone disorder [Unknown]
  - Calcium deficiency [Unknown]
  - Liver disorder [Unknown]
  - Depression [Unknown]
